FAERS Safety Report 19891139 (Version 2)
Quarter: 2023Q1

REPORT INFORMATION
  Report Type: Spontaneous
  Country: US (occurrence: US)
  Receive Date: 20210928
  Receipt Date: 20230124
  Transmission Date: 20230417
  Serious: Yes (Other)
  Sender: FDA-Public Use
  Company Number: US-NOVARTISTESTPH-NVSC2021US217453

PATIENT
  Age: 92 Year
  Sex: Female

DRUGS (9)
  1. BEOVU [Suspect]
     Active Substance: BROLUCIZUMAB-DBLL
     Indication: Neovascular age-related macular degeneration
     Dosage: 6 MG/0.05 ML
     Route: 031
     Dates: start: 20191220
  2. BEOVU [Suspect]
     Active Substance: BROLUCIZUMAB-DBLL
     Indication: Choroidal neovascularisation
     Dosage: 6 MG/0.05 ML
     Route: 031
     Dates: start: 20191223
  3. BEOVU [Suspect]
     Active Substance: BROLUCIZUMAB-DBLL
     Dosage: 6 MG/0.05 ML
     Route: 031
     Dates: start: 20200121
  4. BEOVU [Suspect]
     Active Substance: BROLUCIZUMAB-DBLL
     Dosage: 6 MG/0.05 ML
     Route: 031
     Dates: start: 20200127
  5. BEOVU [Suspect]
     Active Substance: BROLUCIZUMAB-DBLL
     Dosage: UNK
     Route: 031
     Dates: start: 202002
  6. EYLEA [Suspect]
     Active Substance: AFLIBERCEPT
     Indication: Neovascular age-related macular degeneration
     Route: 065
  7. EYLEA [Suspect]
     Active Substance: AFLIBERCEPT
     Indication: Choroidal neovascularisation
  8. AVASTIN [Suspect]
     Active Substance: BEVACIZUMAB
     Indication: Neovascular age-related macular degeneration
     Route: 065
  9. AVASTIN [Suspect]
     Active Substance: BEVACIZUMAB
     Indication: Choroidal neovascularisation

REACTIONS (13)
  - Retinopathy hypertensive [Unknown]
  - Retinal thickening [Unknown]
  - Macular oedema [Unknown]
  - Retinal vascular occlusion [Unknown]
  - Eye inflammation [Unknown]
  - Visual impairment [Unknown]
  - Conjunctival haemorrhage [Unknown]
  - Detachment of retinal pigment epithelium [Unknown]
  - Vitreous detachment [Unknown]
  - Vitreous haemorrhage [Unknown]
  - Dyspnoea exertional [Unknown]
  - Epiretinal membrane [Unknown]
  - Vision blurred [Unknown]

NARRATIVE: CASE EVENT DATE: 20200201
